FAERS Safety Report 6425812-4 (Version None)
Quarter: 2009Q4

REPORT INFORMATION
  Report Type: 
  Country: None (occurrence: None)
  Receive Date: 20091103
  Receipt Date: 20081125
  Transmission Date: 20100525
  Serious: No
  Sender: FDA-Public Use
  Company Number: US-ABBOTT-08P-163-0489871-00

PATIENT
  Sex: Female

DRUGS (1)
  1. BIAXIN [Suspect]
     Indication: INFECTION
     Dosage: UNKNOWN
     Dates: start: 19980101, end: 19980101

REACTIONS (2)
  - ABDOMINAL DISCOMFORT [None]
  - VOMITING [None]
